FAERS Safety Report 5021383-8 (Version None)
Quarter: 2006Q2

REPORT INFORMATION
  Report Type: 
  Country: None (occurrence: None)
  Receive Date: 20060608
  Receipt Date: 20060516
  Transmission Date: 20061013
  Serious: Yes (Hospitalization)
  Sender: FDA-Public Use
  Company Number: US-AMGEN-US179940

PATIENT
  Sex: Male

DRUGS (13)
  1. EPOGEN [Suspect]
     Indication: DIALYSIS
  2. EPOGEN [Suspect]
     Dates: start: 20060411
  3. EPOGEN [Suspect]
     Dates: start: 20060101
  4. REGLAN [Concomitant]
     Dates: start: 20060119
  5. PHOSLO [Concomitant]
     Dates: start: 20050407
  6. GLIPIZIDE [Concomitant]
     Dates: start: 20040407
  7. NORVASC [Concomitant]
     Dates: start: 20050407
  8. ACTOS [Concomitant]
     Dates: start: 20050407
  9. NEPHRO-VITE [Concomitant]
     Dates: start: 20050407
  10. LISINOPRIL [Concomitant]
     Dates: start: 20050407
  11. PLAVIX [Concomitant]
     Dates: start: 20050407
  12. LABETALOL [Concomitant]
     Dates: start: 20050407
  13. ZEMPLAR [Concomitant]
     Dates: start: 20051117

REACTIONS (3)
  - DECREASED APPETITE [None]
  - LEG AMPUTATION [None]
  - THERAPEUTIC RESPONSE DECREASED [None]
